FAERS Safety Report 17636909 (Version 1)
Quarter: 2020Q2

REPORT INFORMATION
  Report Type: Spontaneous
  Country: US (occurrence: US)
  Receive Date: 20200406
  Receipt Date: 20200406
  Transmission Date: 20200713
  Serious: Yes (Death)
  Sender: FDA-Public Use
  Company Number: None

PATIENT
  Age: 56 Year
  Sex: Female

DRUGS (5)
  1. LIDO/PRILOCN [Concomitant]
  2. ANASTROZOLE. [Concomitant]
     Active Substance: ANASTROZOLE
  3. SPIRONOLACT [Concomitant]
     Active Substance: SPIRONOLACTONE
  4. IBRANCE [Suspect]
     Active Substance: PALBOCICLIB
     Indication: NEOPLASM MALIGNANT
     Dosage: ?          OTHER FREQUENCY:QD FOR 21D, OFF 7D;?
     Route: 048
     Dates: start: 20191221, end: 20200203
  5. FUROSEMIDE. [Concomitant]
     Active Substance: FUROSEMIDE

REACTIONS (1)
  - Death [None]

NARRATIVE: CASE EVENT DATE: 20200402
